FAERS Safety Report 7824443-9 (Version None)
Quarter: 2011Q4

REPORT INFORMATION
  Report Type: 
  Country: None (occurrence: None)
  Receive Date: 20111019
  Receipt Date: 20111013
  Transmission Date: 20120403
  Serious: Yes (Death, Hospitalization)
  Sender: FDA-Public Use
  Company Number: JP-ELI_LILLY_AND_COMPANY-JP201109005221

PATIENT
  Sex: Male
  Weight: 68 kg

DRUGS (6)
  1. MASBLON H [Concomitant]
     Dosage: 1 MG, UNK
     Route: 030
     Dates: start: 20110627
  2. ALIMTA [Suspect]
     Indication: LUNG ADENOCARCINOMA
     Dosage: 500 MG/M2, UNK
     Route: 042
     Dates: start: 20110707, end: 20110728
  3. COCARL [Concomitant]
     Indication: CHEST PAIN
     Dosage: 400 MG, UNK
     Route: 048
     Dates: start: 20110526, end: 20110726
  4. TEGRETOL [Concomitant]
     Indication: HYPOAESTHESIA
     Dosage: 100 MG, UNK
     Route: 048
     Dates: start: 20110627, end: 20110812
  5. LENDORMIN [Concomitant]
     Indication: INSOMNIA
     Dosage: 0.25 MG, UNK
     Route: 048
     Dates: start: 20110328, end: 20110823
  6. PANVITAN [Concomitant]
     Dosage: 1 G, UNK
     Route: 048
     Dates: start: 20110627, end: 20110823

REACTIONS (4)
  - BACTERIAL INFECTION [None]
  - NEUTROPHIL COUNT DECREASED [None]
  - LUNG DISORDER [None]
  - PYREXIA [None]
